FAERS Safety Report 10627680 (Version 1)
Quarter: 2014Q4

REPORT INFORMATION
  Report Type: Spontaneous
  Country: GB (occurrence: GB)
  Receive Date: 20141205
  Receipt Date: 20141205
  Transmission Date: 20150529
  Serious: Yes (Disabling, Other)
  Sender: FDA-Public Use
  Company Number: GB-BRISTOL-MYERS SQUIBB COMPANY-21671268

PATIENT
  Age: 66 Year
  Sex: Male
  Weight: 80 kg

DRUGS (7)
  1. RAMIPRIL. [Concomitant]
     Active Substance: RAMIPRIL
     Dosage: LONG TERM
  2. BISOPROLOL [Concomitant]
     Active Substance: BISOPROLOL
     Dosage: LONG TERM
  3. ELIQUIS [Suspect]
     Active Substance: APIXABAN
     Indication: ATRIAL FIBRILLATION
     Route: 048
     Dates: start: 20141004, end: 20141107
  4. ATORVASTATIN [Concomitant]
     Active Substance: ATORVASTATIN
     Dosage: LONG TERM
  5. AMIODARONE [Concomitant]
     Active Substance: AMIODARONE
     Dates: start: 20140926
  6. CLEXANE [Concomitant]
     Active Substance: ENOXAPARIN SODIUM
     Indication: ATRIAL FIBRILLATION
  7. BENDROFLUAZIDE [Concomitant]
     Active Substance: BENDROFLUMETHIAZIDE
     Dosage: LONG TERM

REACTIONS (2)
  - Vertigo [Recovered/Resolved]
  - Tinnitus [Recovered/Resolved]

NARRATIVE: CASE EVENT DATE: 20141020
